FAERS Safety Report 8932621 (Version 1)
Quarter: 2012Q4

REPORT INFORMATION
  Report Type: 
  Country: IT (occurrence: IT)
  Receive Date: 20121129
  Receipt Date: 20121129
  Transmission Date: 20130627
  Serious: Yes (Hospitalization)
  Sender: FDA-Public Use
  Company Number: IT-AMGEN-ITASP2012076097

PATIENT
  Age: 64 Year
  Sex: Male

DRUGS (8)
  1. ARANESP [Suspect]
     Indication: FEBRILE NEUTROPENIA
     Dosage: 150 mug, prn
     Route: 058
     Dates: start: 20121116, end: 20121117
  2. TEVAGRASTIM [Suspect]
     Indication: FEBRILE NEUTROPENIA
     Dosage: 30000 IU, prn
     Route: 058
     Dates: start: 20121116, end: 20121120
  3. ROCEFIN [Suspect]
     Indication: FEBRILE NEUTROPENIA
     Dosage: 1 g, qd
     Route: 042
     Dates: start: 20121116, end: 20121122
  4. CISPLATIN [Concomitant]
     Dosage: 80 mg/m2, UNK
  5. PANTOPRAZOLE [Concomitant]
     Dosage: 40 mg, UNK
     Route: 048
  6. VEPESID [Concomitant]
     Dosage: 100 mg/m2, UNK
  7. EMEND                              /01627301/ [Concomitant]
  8. DELTACORTENE [Concomitant]
     Dosage: 25 mg, UNK

REACTIONS (1)
  - Anaemia haemolytic autoimmune [Unknown]
